FAERS Safety Report 24077273 (Version 9)
Quarter: 2025Q4

REPORT INFORMATION
  Report Type: Report from Study
  Country: KR (occurrence: KR)
  Receive Date: 20240711
  Receipt Date: 20251211
  Transmission Date: 20260117
  Serious: Yes (Hospitalization, Other)
  Sender: ABBVIE
  Company Number: KR-ABBVIE-5832966

PATIENT
  Age: 74 Year
  Sex: Male
  Weight: 76 kg

DRUGS (35)
  1. VENCLEXTA [Suspect]
     Active Substance: VENETOCLAX
     Indication: Acute myeloid leukaemia
     Route: 048
     Dates: start: 20240616, end: 20240616
  2. VENCLEXTA [Suspect]
     Active Substance: VENETOCLAX
     Indication: Acute myeloid leukaemia
     Route: 048
     Dates: start: 20240617, end: 20240617
  3. VENCLEXTA [Suspect]
     Active Substance: VENETOCLAX
     Indication: Acute myeloid leukaemia
     Route: 048
     Dates: start: 20240618, end: 20240706
  4. VENCLEXTA [Suspect]
     Active Substance: VENETOCLAX
     Indication: Acute myeloid leukaemia
     Route: 048
     Dates: start: 20240729, end: 20240811
  5. VENCLEXTA [Suspect]
     Active Substance: VENETOCLAX
     Indication: Acute myeloid leukaemia
     Route: 048
     Dates: start: 20250317, end: 20250326
  6. VENCLEXTA [Suspect]
     Active Substance: VENETOCLAX
     Indication: Acute myeloid leukaemia
     Route: 048
     Dates: start: 20241202, end: 20241211
  7. VENCLEXTA [Suspect]
     Active Substance: VENETOCLAX
     Indication: Acute myeloid leukaemia
     Route: 048
     Dates: start: 20250203, end: 20250212
  8. VENCLEXTA [Suspect]
     Active Substance: VENETOCLAX
     Indication: Acute myeloid leukaemia
     Route: 048
     Dates: start: 20241007, end: 20241016
  9. Cycin [Concomitant]
     Indication: Enterobacter bacteraemia
     Route: 048
     Dates: start: 20240901, end: 20240908
  10. Cycin [Concomitant]
     Indication: Enterobacter bacteraemia
     Route: 048
     Dates: start: 20240617, end: 20240821
  11. LIPITOR [Concomitant]
     Active Substance: ATORVASTATIN CALCIUM
     Indication: Dyslipidaemia
     Dosage: FORM STRENGTH: 10 MILLIGRAM
     Route: 048
  12. Plavitor [Concomitant]
     Indication: Angina pectoris
     Route: 048
  13. NICORANDIL [Concomitant]
     Active Substance: NICORANDIL
     Indication: Angina pectoris
     Dosage: FORM STRENGTH: 5 MILLIGRAM
     Route: 048
  14. ALLOPURINOL [Concomitant]
     Active Substance: ALLOPURINOL
     Indication: Tumour lysis syndrome
     Dosage: TIME INTERVAL: 0.33333333 DAYS: FORM STRENGTH: 100 MILLIGRAM
     Route: 048
     Dates: start: 20240617, end: 20240821
  15. DACOGEN [Concomitant]
     Active Substance: DECITABINE
     Indication: Acute myeloid leukaemia
     Route: 042
     Dates: start: 20240729, end: 20240802
  16. DACOGEN [Concomitant]
     Active Substance: DECITABINE
     Indication: Acute myeloid leukaemia
     Route: 042
     Dates: start: 20240616, end: 20240620
  17. DACOGEN [Concomitant]
     Active Substance: DECITABINE
     Indication: Acute myeloid leukaemia
     Route: 042
     Dates: start: 20240203, end: 20240207
  18. DACOGEN [Concomitant]
     Active Substance: DECITABINE
     Indication: Acute myeloid leukaemia
     Route: 042
     Dates: start: 20240317, end: 20240321
  19. DACOGEN [Concomitant]
     Active Substance: DECITABINE
     Indication: Acute myeloid leukaemia
     Route: 042
     Dates: start: 20241007, end: 20241014
  20. DACOGEN [Concomitant]
     Active Substance: DECITABINE
     Indication: Acute myeloid leukaemia
     Route: 042
     Dates: start: 20240616, end: 20240620
  21. DACOGEN [Concomitant]
     Active Substance: DECITABINE
     Indication: Acute myeloid leukaemia
     Route: 042
     Dates: start: 20240729, end: 20240802
  22. DACOGEN [Concomitant]
     Active Substance: DECITABINE
     Indication: Acute myeloid leukaemia
     Route: 042
     Dates: start: 20241202, end: 20241206
  23. DACOGEN [Concomitant]
     Active Substance: DECITABINE
     Indication: Acute myeloid leukaemia
     Route: 042
     Dates: start: 20250203, end: 20250207
  24. DACOGEN [Concomitant]
     Active Substance: DECITABINE
     Indication: Acute myeloid leukaemia
     Route: 042
     Dates: start: 20250317, end: 20250321
  25. DACOGEN [Concomitant]
     Active Substance: DECITABINE
     Indication: Acute myeloid leukaemia
     Route: 042
     Dates: start: 20241014, end: 20241014
  26. DACOGEN [Concomitant]
     Active Substance: DECITABINE
     Indication: Acute myeloid leukaemia
     Route: 042
     Dates: start: 20241007, end: 20241008
  27. DACOGEN [Concomitant]
     Active Substance: DECITABINE
     Indication: Acute myeloid leukaemia
     Route: 042
     Dates: start: 20241010, end: 20241011
  28. VIMOVO [Concomitant]
     Active Substance: ESOMEPRAZOLE MAGNESIUM\NAPROXEN
     Indication: Pyrexia
     Dosage: 500/20 MILLIGRAM?1 DOSAGE FORM
     Route: 048
     Dates: start: 20240613, end: 20240627
  29. Citopcin [Concomitant]
     Indication: Infection prophylaxis
     Dosage: FORM STRENGTH: 250 MG
     Route: 048
     Dates: start: 20240715, end: 20240818
  30. AVIBACTAM SODIUM\CEFTAZIDIME [Concomitant]
     Active Substance: AVIBACTAM SODIUM\CEFTAZIDIME
     Indication: Enterobacter sepsis
     Dosage: TIME INTERVAL: 0.33333333 DAYS: UNIT DOSE: 1 VIAL
     Route: 042
     Dates: start: 20240823, end: 20240901
  31. Conbloc [Concomitant]
     Indication: Angina pectoris
     Dosage: FORM STRENGTH: 5 MILLIGRAM
     Route: 048
  32. TORSEMIDE [Concomitant]
     Active Substance: TORSEMIDE
     Indication: Hypertension
     Dosage: FORM STRENGTH: 5 MILLIGRAM
     Route: 048
  33. Herben retard [Concomitant]
     Indication: Angina pectoris
     Dosage: FORM STRENGTH: 90 MILLIGRAM
     Route: 048
  34. Yuhan meropen [Concomitant]
     Indication: Bacteraemia
     Dosage: TIME INTERVAL: 0.33333333 DAYS: 500 MILLIGRAM
     Route: 042
     Dates: start: 20240821, end: 20240823
  35. Dong a suprax [Concomitant]
     Indication: Enterobacter bacteraemia
     Route: 048
     Dates: start: 20240909

REACTIONS (3)
  - C-reactive protein increased [Recovered/Resolved]
  - Pyrexia [Recovered/Resolved]
  - Acute myeloid leukaemia [Not Recovered/Not Resolved]

NARRATIVE: CASE EVENT DATE: 20240704
